FAERS Safety Report 24689420 (Version 4)
Quarter: 2025Q3

REPORT INFORMATION
  Report Type: Report from Study
  Country: US (occurrence: US)
  Receive Date: 20241203
  Receipt Date: 20250826
  Transmission Date: 20251021
  Serious: Yes (Hospitalization)
  Sender: AMNEAL
  Company Number: US-AMNEAL PHARMACEUTICALS-2024-AMRX-04361

PATIENT
  Age: 89 Year
  Sex: Male

DRUGS (6)
  1. CARBIDOPA\LEVODOPA [Suspect]
     Active Substance: CARBIDOPA\LEVODOPA
     Indication: Parkinson^s disease
     Dosage: 3 CAPSULES, (36.25-145MG) 3 /DAY
     Route: 048
     Dates: start: 20240328
  2. CARBIDOPA\LEVODOPA [Suspect]
     Active Substance: CARBIDOPA\LEVODOPA
     Dosage: 3 CAPSULES, (61.25-245MG) 3 /DAY
     Route: 048
     Dates: start: 20250423
  3. CARBIDOPA\LEVODOPA [Suspect]
     Active Substance: CARBIDOPA\LEVODOPA
     Dosage: 61.25-245 MG 2 CAPSULES, 3 /DAY
     Route: 048
  4. CARBIDOPA\LEVODOPA [Suspect]
     Active Substance: CARBIDOPA\LEVODOPA
     Dosage: 3 CAPSULES, (36.25-145MG) 3 /DAY
     Route: 048
     Dates: start: 20250811
  5. LUTEIN [Concomitant]
     Active Substance: LUTEIN
     Indication: Macular degeneration
     Route: 065
  6. MINERALS\VITAMINS [Concomitant]
     Active Substance: MINERALS\VITAMINS
     Indication: Macular degeneration
     Route: 065

REACTIONS (6)
  - Abdominal discomfort [Unknown]
  - Pneumonia [Recovered/Resolved]
  - Gait disturbance [Recovered/Resolved]
  - Hiccups [Not Recovered/Not Resolved]
  - Freezing phenomenon [Unknown]
  - Therapy interrupted [Unknown]

NARRATIVE: CASE EVENT DATE: 20250701
